FAERS Safety Report 8696109 (Version 2)
Quarter: 2013Q2

REPORT INFORMATION
  Report Type: Spontaneous
  Country: FR (occurrence: FR)
  Receive Date: 20120801
  Receipt Date: 20130522
  Transmission Date: 20140414
  Serious: Yes (Death, Life-Threatening, Hospitalization, Other)
  Sender: FDA-Public Use
  Company Number: FR-009507513-1207FRA011853

PATIENT
  Age: 88 Year
  Sex: Female

DRUGS (12)
  1. SINGULAIR [Suspect]
     Indication: CHRONIC OBSTRUCTIVE PULMONARY DISEASE
     Dosage: 10 MG, QD
     Route: 048
     Dates: end: 20120205
  2. SINGULAIR [Suspect]
     Indication: ATRIAL FIBRILLATION
  3. KARDEGIC [Suspect]
     Indication: ATRIAL FIBRILLATION
     Dosage: 75 MG, QD
     Route: 048
     Dates: end: 20120205
  4. KARDEGIC [Suspect]
     Indication: THROMBOSIS PROPHYLAXIS
  5. AMIODARONE [Suspect]
     Indication: ATRIAL FIBRILLATION
     Dosage: 1 DF, QD
     Route: 048
     Dates: end: 20120205
  6. AMIODARONE [Suspect]
     Indication: CHRONIC OBSTRUCTIVE PULMONARY DISEASE
  7. AMIODARONE [Suspect]
     Indication: THROMBOSIS PROPHYLAXIS
  8. SYMBICORT TURBUHALER [Suspect]
     Indication: CHRONIC OBSTRUCTIVE PULMONARY DISEASE
     Dosage: 1 DF, BID
     Route: 055
     Dates: end: 20120205
  9. DISCOTRINE [Suspect]
     Indication: ANGINA PECTORIS
     Dosage: 1 UNK, UNK
     Route: 003
     Dates: end: 20120205
  10. DISCOTRINE [Suspect]
     Indication: ATRIAL FIBRILLATION
  11. TAHOR [Suspect]
     Indication: THROMBOSIS PROPHYLAXIS
     Dosage: 1 DF, QD
     Route: 048
     Dates: end: 20120205
  12. TAHOR [Suspect]
     Indication: ANGINA PECTORIS

REACTIONS (8)
  - Cerebral haemorrhage [Fatal]
  - Cerebellar haemorrhage [Fatal]
  - Subarachnoid haemorrhage [Fatal]
  - Off label use [Not Recovered/Not Resolved]
  - Renal failure [Fatal]
  - Hypertensive crisis [Fatal]
  - Bradycardia [Fatal]
  - Acute pulmonary oedema [Fatal]
